FAERS Safety Report 16917715 (Version 4)
Quarter: 2019Q4

REPORT INFORMATION
  Report Type: Report from Study
  Country: US (occurrence: US)
  Receive Date: 20191015
  Receipt Date: 20191222
  Transmission Date: 20200122
  Serious: Yes (Hospitalization, Other)
  Sender: FDA-Public Use
  Company Number: US-AGIOS-1910US01437

PATIENT

DRUGS (1)
  1. TIBSOVO [Suspect]
     Active Substance: IVOSIDENIB
     Indication: ACUTE MYELOID LEUKAEMIA
     Dosage: 250 MILLIGRAM, 2 TABLETS (500 MG), QD
     Route: 048
     Dates: start: 20190816

REACTIONS (9)
  - Pre-existing condition improved [Not Recovered/Not Resolved]
  - Blast cell count decreased [Unknown]
  - Platelet count decreased [Recovering/Resolving]
  - Vomiting [Unknown]
  - Pyrexia [Unknown]
  - Dyspnoea [Unknown]
  - Temperature intolerance [Unknown]
  - Differentiation syndrome [Unknown]
  - Blood test abnormal [Unknown]

NARRATIVE: CASE EVENT DATE: 20190930
